FAERS Safety Report 5933448-4 (Version None)
Quarter: 2008Q4

REPORT INFORMATION
  Report Type: 
  Country: None (occurrence: None)
  Receive Date: 20081022
  Receipt Date: 20070419
  Transmission Date: 20090506
  Serious: Yes (Other)
  Sender: FDA-Public Use
  Company Number: US-WYE-H06417708

PATIENT

DRUGS (1)
  1. ROBITUSSIN COUGH LONG ACTING(DEXTROMETHORPHAN HYDROBROMIDE, SYRUP) [Suspect]
     Indication: DRUG ABUSE
     Dosage: ORAL
     Route: 048
     Dates: start: 20060101

REACTIONS (1)
  - DRUG ABUSE [None]
